FAERS Safety Report 12816305 (Version 1)
Quarter: 2016Q4

REPORT INFORMATION
  Report Type: Spontaneous
  Country: FR (occurrence: FR)
  Receive Date: 20161005
  Receipt Date: 20161005
  Transmission Date: 20170207
  Serious: Yes (Hospitalization)
  Sender: FDA-Public Use
  Company Number: FR-PFIZER INC-2016455008

PATIENT
  Age: 74 Year
  Sex: Female

DRUGS (7)
  1. AZOPT [Concomitant]
     Active Substance: BRINZOLAMIDE
  2. NOVATREX NOS [Suspect]
     Active Substance: AZITHROMYCIN OR METHOTREXATE SODIUM
     Indication: POLYMYALGIA RHEUMATICA
     Dosage: 10 MG, WEEKLY
     Route: 048
     Dates: start: 2004, end: 201209
  3. NAABAK /01266803/ [Concomitant]
  4. SPECIAFOLDINE [Concomitant]
     Active Substance: FOLIC ACID
  5. VITAMINE A [Concomitant]
     Active Substance: RETINOL
  6. XALATAN [Concomitant]
     Active Substance: LATANOPROST
  7. ALPHALAN [Concomitant]

REACTIONS (4)
  - Dyspnoea [Recovered/Resolved]
  - Product use issue [Unknown]
  - Vision blurred [Unknown]
  - Respiratory disorder [Recovered/Resolved]

NARRATIVE: CASE EVENT DATE: 2004
